FAERS Safety Report 6094927-5 (Version None)
Quarter: 2009Q1

REPORT INFORMATION
  Report Type: 
  Country: None (occurrence: None)
  Receive Date: 20090227
  Receipt Date: 20090213
  Transmission Date: 20090719
  Serious: No
  Sender: FDA-Public Use
  Company Number: BE-BRISTOL-MYERS SQUIBB COMPANY-13068580

PATIENT
  Age: 60 Year
  Sex: Male

DRUGS (3)
  1. CISPLATIN [Suspect]
     Indication: HEAD AND NECK CANCER
     Dosage: RECENT INFUSION:31MAY05
     Route: 042
     Dates: start: 20050509
  2. CETUXIMAB [Suspect]
     Indication: HEAD AND NECK CANCER
     Dosage: RECENT INFUSION:07JUN05.STRENGTH 2MG/ML
     Route: 041
     Dates: start: 20050509
  3. FLUOROURACIL [Suspect]
     Indication: HEAD AND NECK CANCER
     Dosage: RECENT INFUSION:04JUN05.
     Route: 042
     Dates: start: 20050309

REACTIONS (1)
  - STOMATITIS [None]
